FAERS Safety Report 7301474-9 (Version None)
Quarter: 2011Q1

REPORT INFORMATION
  Report Type: 
  Country: None (occurrence: None)
  Receive Date: 20110218
  Receipt Date: 20110215
  Transmission Date: 20110831
  Serious: Yes (Hospitalization)
  Sender: FDA-Public Use
  Company Number: AT-ABBOTT-11P-009-0705706-00

PATIENT
  Age: 61 Year
  Sex: Female

DRUGS (10)
  1. DEPAKENE [Interacting]
     Indication: PRODUCT USED FOR UNKNOWN INDICATION
     Dosage: 1500 MG DAILY
     Route: 065
     Dates: start: 20101210, end: 20101216
  2. ABILIFY [Interacting]
     Route: 065
     Dates: start: 20101209, end: 20101213
  3. ABILIFY [Interacting]
     Indication: PSYCHOTHERAPY
     Dosage: 5 MG DAILY DOSE
     Route: 065
     Dates: start: 20101202, end: 20101202
  4. ABILIFY [Interacting]
     Dosage: 15 MG DAILY DOSE
     Route: 065
     Dates: start: 20101205, end: 20101209
  5. QUILONORM RETARD [Suspect]
     Indication: PRODUCT USED FOR UNKNOWN INDICATION
     Dosage: 1125 MG DAILY
     Route: 065
     Dates: start: 20101127, end: 20101207
  6. QUILONORM RETARD [Suspect]
     Dosage: 450 MG DAILY DOSE
     Route: 065
     Dates: start: 20101216, end: 20101216
  7. ABILIFY [Interacting]
     Dosage: 10 MG DAILY DOSE
     Route: 065
     Dates: start: 20101203, end: 20101204
  8. QUILONORM RETARD [Suspect]
     Dosage: 900 MG DAILY DOSE
     Route: 065
     Dates: start: 20101208, end: 20101216
  9. ABILIFY [Interacting]
     Dosage: 30 MG DAILY
     Route: 065
     Dates: start: 20101214, end: 20101215
  10. ZYPREXA [Concomitant]
     Indication: PRODUCT USED FOR UNKNOWN INDICATION
     Dates: start: 20101129, end: 20101202

REACTIONS (5)
  - NEUROLEPTIC MALIGNANT SYNDROME [None]
  - PYREXIA [None]
  - DISORIENTATION [None]
  - CHILLS [None]
  - DRUG INTERACTION [None]
